FAERS Safety Report 7015603-8 (Version None)
Quarter: 2010Q3

REPORT INFORMATION
  Report Type: 
  Country: None (occurrence: None)
  Receive Date: 20100927
  Receipt Date: 20100922
  Transmission Date: 20110219
  Serious: Yes (Other)
  Sender: FDA-Public Use
  Company Number: IE-MERCK-1009GBR00088

PATIENT
  Age: 50 Year
  Sex: Male

DRUGS (1)
  1. ZOCOR [Suspect]
     Indication: BLOOD CHOLESTEROL INCREASED
     Route: 048
     Dates: start: 20100623, end: 20100909

REACTIONS (2)
  - HYPOAESTHESIA [None]
  - PARAESTHESIA [None]
